FAERS Safety Report 9765402 (Version 1)
Quarter: 2013Q4

REPORT INFORMATION
  Report Type: Spontaneous
  Country: US (occurrence: US)
  Receive Date: 20131217
  Receipt Date: 20131217
  Transmission Date: 20140711
  Serious: No
  Sender: FDA-Public Use
  Company Number: US-BIOGENIDEC-2013BI110234

PATIENT
  Sex: Female

DRUGS (12)
  1. TECFIDERA [Suspect]
     Indication: MULTIPLE SCLEROSIS
  2. TECFIDERA [Suspect]
     Indication: MULTIPLE SCLEROSIS
     Route: 048
     Dates: start: 20131024
  3. TECFIDERA [Suspect]
     Indication: MULTIPLE SCLEROSIS
     Route: 048
  4. ADDERALL [Concomitant]
  5. CO-Q 10 OMEGA-3 FISH OIL [Concomitant]
  6. FLUTICASONE PROPIONATE [Concomitant]
  7. LORATADINE [Concomitant]
  8. MIRALAX [Concomitant]
  9. OMEGA-3 [Concomitant]
  10. VITAMIN B12 [Concomitant]
  11. VITAMIN D3 [Concomitant]
  12. XANAX [Concomitant]

REACTIONS (4)
  - Haematemesis [Recovered/Resolved]
  - Pyrexia [Recovered/Resolved]
  - Urticaria [Recovered/Resolved]
  - Flushing [Recovered/Resolved]
